FAERS Safety Report 4571626-X (Version None)
Quarter: 2005Q1

REPORT INFORMATION
  Report Type: 
  Country: None (occurrence: None)
  Receive Date: 20050207
  Receipt Date: 20050127
  Transmission Date: 20050727
  Serious: Yes (Death)
  Sender: FDA-Public Use
  Company Number: 200510328FR

PATIENT
  Age: 74 Year
  Sex: Male

DRUGS (5)
  1. AMAREL [Suspect]
     Indication: DIABETES MELLITUS NON-INSULIN-DEPENDENT
     Route: 048
  2. VISKEN [Suspect]
     Route: 048
  3. OMIX [Suspect]
     Route: 048
  4. VIOXX [Suspect]
     Route: 048
     Dates: start: 20021101
  5. METFORMIN HCL [Suspect]
     Route: 048

REACTIONS (11)
  - ANOXIA [None]
  - ARRHYTHMIA [None]
  - CARDIAC ARREST [None]
  - CEREBRAL DISORDER [None]
  - COMA [None]
  - ELECTROENCEPHALOGRAM ABNORMAL [None]
  - GENERAL PHYSICAL HEALTH DETERIORATION [None]
  - NOSOCOMIAL INFECTION [None]
  - PNEUMONIA [None]
  - SEPSIS [None]
  - SUPERINFECTION [None]
